FAERS Safety Report 9594546 (Version 1)
Quarter: 2013Q3

REPORT INFORMATION
  Report Type: Spontaneous
  Country: US (occurrence: None)
  Receive Date: 20130923
  Receipt Date: 20130923
  Transmission Date: 20140515
  Serious: Yes (Hospitalization)
  Sender: FDA-Public Use
  Company Number: 2012ST000571

PATIENT
  Age: 58 Year
  Sex: Female

DRUGS (6)
  1. MATULANE [Suspect]
     Indication: HODGKIN^S DISEASE
  2. BLEOMYCIN [Suspect]
     Indication: HODGKIN^S DISEASE
     Dates: start: 20120710
  3. ETOPOSIDE [Suspect]
     Indication: HODGKIN^S DISEASE
  4. DOXORUBICIN [Suspect]
     Indication: HODGKIN^S DISEASE
  5. CYCLOPHOSPHAMIDE [Suspect]
     Indication: HODGKIN^S DISEASE
  6. VINCRISTINE [Suspect]
     Indication: HODGKIN^S DISEASE

REACTIONS (2)
  - Leukopenia [None]
  - Herpes zoster [None]
